FAERS Safety Report 22157786 (Version 4)
Quarter: 2025Q2

REPORT INFORMATION
  Report Type: Spontaneous
  Country: US (occurrence: US)
  Receive Date: 20230330
  Receipt Date: 20250502
  Transmission Date: 20250717
  Serious: No
  Sender: PFIZER
  Company Number: US-PFIZER INC-PV202300056539

PATIENT
  Age: 65 Year
  Sex: Female
  Weight: 52.154 kg

DRUGS (10)
  1. XELJANZ XR [Suspect]
     Active Substance: TOFACITINIB CITRATE
     Indication: Mixed connective tissue disease
     Dosage: 11 MG, 1X/DAY (EVERY MORNING)
     Dates: start: 2018
  2. XELJANZ XR [Suspect]
     Active Substance: TOFACITINIB CITRATE
     Indication: Rheumatoid arthritis
  3. AMITRIPTYLINE [Concomitant]
     Active Substance: AMITRIPTYLINE
     Dates: end: 2022
  4. DULOXETINE [Concomitant]
     Active Substance: DULOXETINE
     Dates: start: 2020
  5. FAMOTIDINE [Concomitant]
     Active Substance: FAMOTIDINE
     Dates: start: 2014
  6. HYDROXYCHLOROQUINE [Concomitant]
     Active Substance: HYDROXYCHLOROQUINE
     Dates: start: 2017
  7. LEVOCETIRIZINE [Concomitant]
     Active Substance: LEVOCETIRIZINE
     Dates: start: 2019
  8. LISINOPRIL [Concomitant]
     Active Substance: LISINOPRIL
     Dates: start: 2019
  9. OMEPRAZOLE [Concomitant]
     Active Substance: OMEPRAZOLE
     Dates: start: 2014
  10. TRAMADOL [Concomitant]
     Active Substance: TRAMADOL
     Dates: start: 2017

REACTIONS (5)
  - Oesophageal spasm [Recovered/Resolved]
  - Lip swelling [Unknown]
  - Musculoskeletal discomfort [Unknown]
  - Chest discomfort [Unknown]
  - Chest pain [Unknown]

NARRATIVE: CASE EVENT DATE: 20230613
